FAERS Safety Report 9387212 (Version 1)
Quarter: 2013Q3

REPORT INFORMATION
  Report Type: Spontaneous
  Country: US (occurrence: None)
  Receive Date: 20130703
  Receipt Date: 20130703
  Transmission Date: 20140515
  Serious: Yes (Other)
  Sender: FDA-Public Use
  Company Number: None

PATIENT
  Age: 45 Year
  Sex: Female

DRUGS (1)
  1. BUDEPRION SR [Suspect]
     Indication: MAJOR DEPRESSION
     Route: 048
     Dates: start: 20060815

REACTIONS (3)
  - Depression [None]
  - Disease recurrence [None]
  - Product substitution issue [None]
